FAERS Safety Report 24623524 (Version 1)
Quarter: 2024Q4

REPORT INFORMATION
  Report Type: Report from Study
  Country: CZ (occurrence: CZ)
  Receive Date: 20241115
  Receipt Date: 20241115
  Transmission Date: 20250114
  Serious: Yes (Other)
  Sender: RANBAXY
  Company Number: CZ-SUN PHARMACEUTICAL INDUSTRIES LTD-2024RR-479292

PATIENT
  Age: 68 Year

DRUGS (3)
  1. GEMCITABINE [Suspect]
     Active Substance: GEMCITABINE
     Indication: Bladder squamous cell carcinoma stage unspecified
     Dosage: UNK
     Route: 065
     Dates: start: 201906, end: 201909
  2. CARBOPLATIN [Suspect]
     Active Substance: CARBOPLATIN
     Indication: Bladder squamous cell carcinoma stage unspecified
     Dosage: UNK
     Route: 065
     Dates: start: 201906, end: 201909
  3. PACLITAXEL [Suspect]
     Active Substance: PACLITAXEL
     Indication: Bladder squamous cell carcinoma stage unspecified
     Dosage: UNK, WEEKLY
     Route: 065

REACTIONS (3)
  - Neoplasm progression [Recovering/Resolving]
  - Haematuria [Recovering/Resolving]
  - Hypersensitivity [Recovering/Resolving]
